FAERS Safety Report 5847842-3 (Version None)
Quarter: 2008Q3

REPORT INFORMATION
  Report Type: 
  Country: None (occurrence: None)
  Receive Date: 20080814
  Receipt Date: 20080814
  Transmission Date: 20090109
  Serious: No
  Sender: FDA-Public Use
  Company Number: None

PATIENT
  Age: 15 Year
  Sex: Female
  Weight: 56.6996 kg

DRUGS (1)
  1. GRIS-PEG [Suspect]
     Indication: SKIN DISCOLOURATION
     Dosage: 1 TABLET TWICE A DAY FOR 4 PO
     Route: 048
     Dates: start: 20080805

REACTIONS (7)
  - EXFOLIATIVE RASH [None]
  - FATIGUE [None]
  - HEADACHE [None]
  - LIP PAIN [None]
  - LIP SWELLING [None]
  - RASH [None]
  - RASH ERYTHEMATOUS [None]
